FAERS Safety Report 8443546-1 (Version None)
Quarter: 2012Q2

REPORT INFORMATION
  Report Type: 
  Country: None (occurrence: None)
  Receive Date: 20120618
  Receipt Date: 20120613
  Transmission Date: 20120825
  Serious: No
  Sender: FDA-Public Use
  Company Number: US-PFIZER INC-2012142893

PATIENT
  Sex: Male
  Weight: 97.506 kg

DRUGS (2)
  1. IBUPROFEN (ADVIL) [Suspect]
     Dosage: UNK
     Dates: start: 20120522
  2. METFORMIN HYDROCHLORIDE [Suspect]
     Dosage: 1000 MG, UNK
     Dates: start: 20120522, end: 20120601

REACTIONS (2)
  - MALAISE [None]
  - WRONG DRUG ADMINISTERED [None]
